FAERS Safety Report 15643587 (Version 2)
Quarter: 2018Q4

REPORT INFORMATION
  Report Type: Report from Study
  Country: JP (occurrence: JP)
  Receive Date: 20181121
  Receipt Date: 20181219
  Transmission Date: 20190205
  Serious: Yes (Hospitalization)
  Sender: FDA-Public Use
  Company Number: JP-PFIZER INC-2018336271

PATIENT
  Age: 85 Year
  Sex: Female
  Weight: 50.9 kg

DRUGS (11)
  1. AXITINIB [Suspect]
     Active Substance: AXITINIB
     Indication: METASTATIC RENAL CELL CARCINOMA
     Dosage: 2 MG, 2X/DAY
     Route: 048
     Dates: start: 20160226, end: 20180820
  2. DOXAZOSIN MESILATE [Concomitant]
     Active Substance: DOXAZOSIN MESYLATE
     Indication: HYPERTENSION
     Dosage: 2 MG, 2X/DAY
     Route: 048
     Dates: start: 20150609
  3. KETOPROFEN. [Concomitant]
     Active Substance: KETOPROFEN
     Indication: BACK PAIN
     Dosage: 20 MG, AS NEEDED
     Route: 062
     Dates: start: 20160614
  4. CLONAZEPAM. [Concomitant]
     Active Substance: CLONAZEPAM
     Indication: AUTONOMIC NERVOUS SYSTEM IMBALANCE
     Dosage: 0.5 MG, 2X/DAY
     Route: 048
  5. VALSARTAN. [Concomitant]
     Active Substance: VALSARTAN
     Indication: HYPERTENSION
     Dosage: 40 MG, DAILY
     Route: 048
     Dates: start: 20160622
  6. RABEPRAZOLE SODIUM. [Concomitant]
     Active Substance: RABEPRAZOLE SODIUM
     Indication: GASTRIC ULCER
     Dosage: 10 MG, DAILY
     Route: 048
     Dates: start: 20121108
  7. TANDOSPIRONE CITRATE [Concomitant]
     Active Substance: TANDOSPIRONE CITRATE
     Indication: AUTONOMIC NERVOUS SYSTEM IMBALANCE
     Dosage: 10 MG, 2X/DAY
     Route: 048
  8. AMLODIPINE BESILATE [Concomitant]
     Active Substance: AMLODIPINE BESYLATE
     Indication: HYPERTENSION
     Dosage: 10 MG, DAILY
     Route: 048
     Dates: start: 20110105
  9. PAROXETINE HYDROCHLORIDE. [Concomitant]
     Active Substance: PAROXETINE HYDROCHLORIDE
     Indication: DEPRESSION
     Dosage: 2.5 MG, DAILY
     Route: 048
  10. TOFISOPAM [Concomitant]
     Active Substance: TOFISOPAM
     Indication: AUTONOMIC NERVOUS SYSTEM IMBALANCE
     Dosage: 50 MG, 2X/DAY
     Route: 048
  11. ATORVASTATIN CALCIUM. [Concomitant]
     Active Substance: ATORVASTATIN CALCIUM
     Indication: DYSLIPIDAEMIA
     Dosage: 5 MG, DAILY
     Route: 048

REACTIONS (1)
  - Computerised tomogram thorax abnormal [Recovering/Resolving]

NARRATIVE: CASE EVENT DATE: 20180621
